FAERS Safety Report 7478041-X (Version None)
Quarter: 2011Q2

REPORT INFORMATION
  Report Type: 
  Country: None (occurrence: None)
  Receive Date: 20110513
  Receipt Date: 20110310
  Transmission Date: 20111010
  Serious: No
  Sender: FDA-Public Use
  Company Number: US-BAYER-2011-023379

PATIENT
  Sex: Male

DRUGS (1)
  1. NEXAVAR [Suspect]
     Indication: LIVER DISORDER
     Dosage: 400 MG, BID
     Route: 048
     Dates: start: 20110226

REACTIONS (1)
  - RASH [None]
